FAERS Safety Report 23045422 (Version 6)
Quarter: 2023Q4

REPORT INFORMATION
  Report Type: Spontaneous
  Country: US (occurrence: US)
  Receive Date: 20231009
  Receipt Date: 20231114
  Transmission Date: 20240110
  Serious: No
  Sender: FDA-Public Use
  Company Number: US-PFIZER INC-202300305342

PATIENT
  Age: 15 Year
  Sex: Male
  Weight: 64.41 kg

DRUGS (3)
  1. GENOTROPIN [Suspect]
     Active Substance: SOMATROPIN
     Indication: Growth hormone deficiency
     Dosage: 2.4 MG (2.4MG ALTERNATING WITH 2.6MG, 6 DAYS PER WEEK)
  2. GENOTROPIN [Suspect]
     Active Substance: SOMATROPIN
     Dosage: 2.6 MG (2.4MG ALTERNATING WITH 2.6MG, 6 DAYS PER WEEK)
  3. ANASTROZOLE [Concomitant]
     Active Substance: ANASTROZOLE
     Dosage: UNK

REACTIONS (3)
  - Poor quality device used [Unknown]
  - Device defective [Unknown]
  - Device leakage [Unknown]
